FAERS Safety Report 8214664-8 (Version None)
Quarter: 2012Q1

REPORT INFORMATION
  Report Type: 
  Country: None (occurrence: None)
  Receive Date: 20120316
  Receipt Date: 20120308
  Transmission Date: 20120608
  Serious: Yes (Other)
  Sender: FDA-Public Use
  Company Number: JP-VERTEX PHARMACEUTICALS INC.-AE-2012-003361

PATIENT
  Age: 54 Year
  Sex: Male

DRUGS (5)
  1. RIBAVIRIN [Concomitant]
     Indication: HEPATITIS C
     Route: 048
     Dates: start: 20120229
  2. TELAVIC (TELAPREVIR) [Suspect]
     Indication: HEPATITIS C
     Route: 048
     Dates: start: 20120229, end: 20120304
  3. RABEPRAZOLE SODIUM [Concomitant]
  4. TELAVIC (TELAPREVIR) [Suspect]
     Route: 048
     Dates: start: 20120305
  5. PEGINTERFERON [Concomitant]
     Indication: HEPATITIS C
     Route: 058
     Dates: start: 20120229

REACTIONS (8)
  - HYPOTENSION [None]
  - HYPOVOLAEMIA [None]
  - BLOOD CREATININE INCREASED [None]
  - PRURITUS [None]
  - BLOOD UREA INCREASED [None]
  - PYREXIA [None]
  - BLOOD URIC ACID INCREASED [None]
  - RASH GENERALISED [None]
